FAERS Safety Report 19271058 (Version 4)
Quarter: 2021Q3

REPORT INFORMATION
  Report Type: Spontaneous
  Country: US (occurrence: US)
  Receive Date: 20210518
  Receipt Date: 20210810
  Transmission Date: 20211014
  Serious: Yes (Other)
  Sender: FDA-Public Use
  Company Number: US-ASTRAZENECA-2021A014546

PATIENT
  Age: 46 Year
  Sex: Male

DRUGS (6)
  1. SEROQUEL [Suspect]
     Active Substance: QUETIAPINE FUMARATE
     Indication: SOCIAL PROBLEM
     Route: 048
  2. ABILIFY [Concomitant]
     Active Substance: ARIPIPRAZOLE
     Dosage: 15 MG PO DAILY
  3. ARTANE [Concomitant]
     Active Substance: TRIHEXYPHENIDYL HYDROCHLORIDE
     Dosage: 2 MG A DAY
  4. ATARAX [Concomitant]
     Active Substance: HYDROXYZINE HYDROCHLORIDE
     Dosage: 25 MG ORAL EVERY 6 HOURS AS REQUIRED
  5. NOVOLIN NOS [Concomitant]
     Active Substance: INSULIN HUMAN
     Dosage: 70/30 22 UNITS IM HS
  6. THORAZINE [Concomitant]
     Active Substance: CHLORPROMAZINE
     Dosage: 50 MG AT BEDTIME AS NEEDED

REACTIONS (7)
  - Post-traumatic stress disorder [Unknown]
  - Stress [Unknown]
  - Diabetic coma [Unknown]
  - Diabetes mellitus [Unknown]
  - Schizoaffective disorder [Unknown]
  - Substance dependence [Unknown]
  - Personality disorder [Unknown]
